FAERS Safety Report 15249474 (Version 1)
Quarter: 2018Q3

REPORT INFORMATION
  Report Type: Spontaneous
  Country: US (occurrence: US)
  Receive Date: 20180807
  Receipt Date: 20180807
  Transmission Date: 20181010
  Serious: No
  Sender: FDA-Public Use
  Company Number: US-MYLANLABS-2018M1055250

PATIENT
  Age: 54 Year
  Sex: Male
  Weight: 106 kg

DRUGS (3)
  1. EMSAM [Suspect]
     Active Substance: SELEGILINE
     Dosage: 6 MG, UNK
     Route: 062
     Dates: start: 20180412
  2. EMSAM [Suspect]
     Active Substance: SELEGILINE
     Dosage: 9 MG, UNK
     Route: 062
  3. EMSAM [Suspect]
     Active Substance: SELEGILINE
     Indication: DEPRESSION
     Dosage: 12 MG, UNK
     Route: 062
     Dates: start: 20180608

REACTIONS (4)
  - Application site exfoliation [Not Recovered/Not Resolved]
  - Application site reaction [Not Recovered/Not Resolved]
  - Application site discolouration [Not Recovered/Not Resolved]
  - Application site pruritus [Not Recovered/Not Resolved]
